FAERS Safety Report 7102219-8 (Version None)
Quarter: 2010Q4

REPORT INFORMATION
  Report Type: 
  Country: None (occurrence: None)
  Receive Date: 20101115
  Receipt Date: 20101109
  Transmission Date: 20110411
  Serious: Yes (Hospitalization)
  Sender: FDA-Public Use
  Company Number: US-BIOGENIDEC-2010BI033019

PATIENT
  Age: 59 Year
  Sex: Female

DRUGS (1)
  1. TYSABRI [Suspect]
     Indication: MULTIPLE SCLEROSIS
     Route: 042
     Dates: start: 20100727, end: 20100824

REACTIONS (6)
  - FALL [None]
  - FOOT FRACTURE [None]
  - IRRITABILITY [None]
  - MENTAL IMPAIRMENT [None]
  - SUICIDE ATTEMPT [None]
  - VIOLENCE-RELATED SYMPTOM [None]
